FAERS Safety Report 20174133 (Version 1)
Quarter: 2021Q4

REPORT INFORMATION
  Report Type: Spontaneous
  Country: US (occurrence: US)
  Receive Date: 20211213
  Receipt Date: 20211213
  Transmission Date: 20220303
  Serious: Yes (Hospitalization, Other)
  Sender: FDA-Public Use
  Company Number: US-NOVOPROD-87304

PATIENT
  Age: 88 Year
  Sex: Male

DRUGS (1)
  1. XULTOPHY 100/3.6 [Suspect]
     Active Substance: INSULIN DEGLUDEC\LIRAGLUTIDE
     Indication: Product used for unknown indication
     Dosage: UNK
     Route: 058

REACTIONS (4)
  - Blindness [Not Recovered/Not Resolved]
  - Disability [Not Recovered/Not Resolved]
  - Hospitalisation [Not Recovered/Not Resolved]
  - Hypoacusis [Not Recovered/Not Resolved]
